FAERS Safety Report 15987067 (Version 10)
Quarter: 2020Q1

REPORT INFORMATION
  Report Type: Report from Study
  Country: CA (occurrence: CA)
  Receive Date: 20190220
  Receipt Date: 20200110
  Transmission Date: 20200409
  Serious: Yes (Life-Threatening, Hospitalization, Other)
  Sender: FDA-Public Use
  Company Number: PHHY2017CA172214

PATIENT
  Age: 66 Year
  Sex: Male
  Weight: 133 kg

DRUGS (30)
  1. ENTRESTO [Suspect]
     Active Substance: SACUBITRIL\VALSARTAN
     Dosage: 2 DF (49 /51 MG), UNK
     Route: 048
     Dates: start: 20170623, end: 20170809
  2. PROPANOLOL [Concomitant]
     Active Substance: PROPRANOLOL HYDROCHLORIDE
     Indication: ARRHYTHMIA
     Dosage: 40 MG, Q6H
     Route: 048
     Dates: start: 20190130, end: 20190130
  3. ENTRESTO [Suspect]
     Active Substance: SACUBITRIL\VALSARTAN
     Indication: CARDIAC FAILURE
     Dosage: 2 DF (24 MG SACUBITRIL AND 26 MG VALSARTAN), UNK
     Route: 048
     Dates: start: 20170523, end: 20170622
  4. ENTRESTO [Suspect]
     Active Substance: SACUBITRIL\VALSARTAN
     Dosage: 2 DF (97/103 MG), UNK
     Route: 048
     Dates: start: 20170809, end: 20171030
  5. BISOPROLOL [Concomitant]
     Active Substance: BISOPROLOL
     Dosage: 10 MG, UNK
     Route: 048
     Dates: start: 20170928, end: 20171106
  6. POTASSIUM CHLORIDE. [Concomitant]
     Active Substance: POTASSIUM CHLORIDE
     Indication: PRODUCT USED FOR UNKNOWN INDICATION
     Dosage: 1500 MG, UNK
     Route: 048
  7. COLCHICINE. [Concomitant]
     Active Substance: COLCHICINE
     Indication: PRODUCT USED FOR UNKNOWN INDICATION
     Dosage: 1.05 MG, UNK
     Route: 048
     Dates: end: 20171106
  8. PREVACID [Concomitant]
     Active Substance: LANSOPRAZOLE
     Indication: PRODUCT USED FOR UNKNOWN INDICATION
     Dosage: 60 MG, UNK
     Route: 048
  9. PRADAXA [Concomitant]
     Active Substance: DABIGATRAN ETEXILATE MESYLATE
     Indication: PRODUCT USED FOR UNKNOWN INDICATION
     Dosage: 300 MG, UNK
     Route: 048
  10. ASA [Concomitant]
     Active Substance: ASPIRIN
     Indication: PRODUCT USED FOR UNKNOWN INDICATION
     Dosage: 81 MG, UNK
     Route: 048
  11. PENTOXYFYLLINE [Concomitant]
     Indication: PRODUCT USED FOR UNKNOWN INDICATION
     Dosage: 400 MG, UNK
     Route: 048
  12. FUROSEMIDE. [Concomitant]
     Active Substance: FUROSEMIDE
     Indication: PRODUCT USED FOR UNKNOWN INDICATION
     Dosage: 80 MG, UNK
     Route: 048
  13. INVOKANA [Concomitant]
     Active Substance: CANAGLIFLOZIN
     Indication: PRODUCT USED FOR UNKNOWN INDICATION
     Dosage: 300 MG, UNK
     Route: 048
  14. TYLENOL [Concomitant]
     Active Substance: ACETAMINOPHEN
     Indication: PRODUCT USED FOR UNKNOWN INDICATION
     Dosage: 1300 MG, UNK
     Route: 048
  15. MEXILETINE [Concomitant]
     Active Substance: MEXILETINE
     Indication: ARRHYTHMIA
     Dosage: 200 MG, TID
     Route: 065
     Dates: start: 20190201
  16. DIGOXIN. [Concomitant]
     Active Substance: DIGOXIN
     Dosage: 0.063 MG, QOD
     Route: 065
     Dates: start: 20170926
  17. ENTRESTO [Suspect]
     Active Substance: SACUBITRIL\VALSARTAN
     Dosage: 2 DF (49/51 MG), UNK
     Route: 065
     Dates: start: 20190421
  18. DIGOXIN. [Concomitant]
     Active Substance: DIGOXIN
     Dosage: 0.054 MG, UNK
     Route: 065
     Dates: start: 20170926
  19. BISOPROLOL [Concomitant]
     Active Substance: BISOPROLOL
     Indication: PRODUCT USED FOR UNKNOWN INDICATION
     Dosage: 7.5 MG, UNK
     Route: 048
     Dates: end: 20170928
  20. BISOPROLOL [Concomitant]
     Active Substance: BISOPROLOL
     Dosage: 7.5 UG, UNK
     Route: 048
     Dates: start: 20171107, end: 20171123
  21. ONGLYZA [Concomitant]
     Active Substance: SAXAGLIPTIN HYDROCHLORIDE
     Indication: PRODUCT USED FOR UNKNOWN INDICATION
     Dosage: 5 MG, UNK
     Route: 048
  22. AMIODARONE [Concomitant]
     Active Substance: AMIODARONE
     Indication: ARRHYTHMIA
     Dosage: 150 MG, UNK
     Route: 042
     Dates: start: 20190130
  23. ENTRESTO [Suspect]
     Active Substance: SACUBITRIL\VALSARTAN
     Dosage: 2 DF (49/51 MG), UNK
     Route: 048
     Dates: start: 20171101, end: 20171120
  24. ENTRESTO [Suspect]
     Active Substance: SACUBITRIL\VALSARTAN
     Dosage: 2 DF (97/103 MG), UNK
     Route: 048
     Dates: start: 20171121, end: 20190206
  25. IBUPROFEN. [Concomitant]
     Active Substance: IBUPROFEN
     Indication: PRODUCT USED FOR UNKNOWN INDICATION
     Dosage: 600 MG, UNK
     Route: 048
     Dates: start: 20171120
  26. PROPAFENONE. [Concomitant]
     Active Substance: PROPAFENONE
     Indication: PRODUCT USED FOR UNKNOWN INDICATION
     Dosage: UNK
     Route: 065
  27. DIGOXIN. [Concomitant]
     Active Substance: DIGOXIN
     Indication: CARDIAC FAILURE
     Dosage: 0.125 MG, UNK
     Route: 048
     Dates: end: 20170926
  28. BISOPROLOL [Concomitant]
     Active Substance: BISOPROLOL
     Dosage: 10 MG, UNK
     Route: 048
     Dates: start: 20180417
  29. COLCHICINE. [Concomitant]
     Active Substance: COLCHICINE
     Dosage: 0.3 MG, UNK
     Route: 048
     Dates: start: 20171107
  30. MAGNESIUM [Concomitant]
     Active Substance: MAGNESIUM
     Indication: ARRHYTHMIA
     Dosage: 2 G, UNK
     Route: 042
     Dates: start: 20190130, end: 20190130

REACTIONS (17)
  - Dizziness [Unknown]
  - Ventricular arrhythmia [Unknown]
  - Pneumonia aspiration [Recovered/Resolved]
  - Dyspnoea [Recovered/Resolved]
  - Ventricular tachycardia [Recovered/Resolved]
  - Hyperhidrosis [Unknown]
  - Respiratory tract congestion [Recovered/Resolved]
  - Chills [Recovered/Resolved]
  - Pneumonia [Recovered/Resolved]
  - Ventricular tachycardia [Recovered/Resolved]
  - Renal impairment [Not Recovered/Not Resolved]
  - Weight increased [Recovered/Resolved]
  - Blood potassium increased [Recovering/Resolving]
  - Herpes zoster [Not Recovered/Not Resolved]
  - Back pain [Not Recovered/Not Resolved]
  - Ventricular fibrillation [Recovered/Resolved]
  - Ventricular tachycardia [Recovered/Resolved]

NARRATIVE: CASE EVENT DATE: 20170926
